FAERS Safety Report 4496288-1 (Version None)
Quarter: 2004Q4

REPORT INFORMATION
  Report Type: 
  Country: None (occurrence: None)
  Receive Date: 20041108
  Receipt Date: 20041108
  Transmission Date: 20050328
  Serious: Yes (Other)
  Sender: FDA-Public Use
  Company Number: None

PATIENT
  Sex: Male
  Weight: 95.2554 kg

DRUGS (1)
  1. ROGAINE 5 [Suspect]
     Dosage: TWICE A DAY

REACTIONS (2)
  - APPLICATION SITE IRRITATION [None]
  - DRUG INEFFECTIVE [None]
